FAERS Safety Report 15834839 (Version 2)
Quarter: 2020Q2

REPORT INFORMATION
  Report Type: Report from Study
  Country: None (occurrence: FR)
  Receive Date: 20190116
  Receipt Date: 20200604
  Transmission Date: 20200713
  Serious: Yes (Other)
  Sender: FDA-Public Use
  Company Number: FR-BAUSCH-BL-2019-001257

PATIENT
  Age: 78 Year
  Sex: Male

DRUGS (7)
  1. BENZALKONIUM CHLORIDE. [Suspect]
     Active Substance: BENZALKONIUM CHLORIDE
     Indication: OPEN ANGLE GLAUCOMA
     Route: 061
  2. ACETAZOLAMIDE. [Suspect]
     Active Substance: ACETAZOLAMIDE
     Indication: OPEN ANGLE GLAUCOMA
     Route: 048
  3. LATANOPROST. [Suspect]
     Active Substance: LATANOPROST
     Indication: OPEN ANGLE GLAUCOMA
     Route: 061
  4. PILOCARPINE. [Suspect]
     Active Substance: PILOCARPINE
     Indication: OPEN ANGLE GLAUCOMA
     Route: 061
  5. BRIMONIDINE [Suspect]
     Active Substance: BRIMONIDINE TARTRATE
     Indication: OPEN ANGLE GLAUCOMA
     Route: 061
  6. TIMOLOL PLUS DORZOLAMIDE [Suspect]
     Active Substance: DORZOLAMIDE HYDROCHLORIDE\TIMOLOL MALEATE
     Indication: OPEN ANGLE GLAUCOMA
     Route: 061
  7. DEXAMETHASONE/NEOMYCIN [Suspect]
     Active Substance: DEXAMETHASONE\NEOMYCIN
     Indication: OPEN ANGLE GLAUCOMA
     Route: 061

REACTIONS (3)
  - Blepharitis [Recovered/Resolved]
  - Ocular hyperaemia [Recovering/Resolving]
  - Therapy non-responder [Unknown]
